FAERS Safety Report 11685780 (Version 3)
Quarter: 2016Q2

REPORT INFORMATION
  Report Type: Report from Study
  Country: FR (occurrence: FR)
  Receive Date: 20151030
  Receipt Date: 20160627
  Transmission Date: 20160815
  Serious: Yes (Death)
  Sender: FDA-Public Use
  Company Number: FR-TEVA-604306ISR

PATIENT
  Age: 30 Year
  Sex: Female

DRUGS (6)
  1. CODEINE [Suspect]
     Active Substance: CODEINE
     Route: 065
  2. OXAZEPAM. [Suspect]
     Active Substance: OXAZEPAM
     Route: 065
  3. ALPRAZOLAM. [Suspect]
     Active Substance: ALPRAZOLAM
     Route: 065
  4. DUROGESIC [Interacting]
     Active Substance: FENTANYL
     Dosage: 4X 12 MICROG/H + 1 UNIDENTIFIED CIRCULAR PATCH; CUMULATIVE DOSAGE OF PATCH WAS MORE THAN 48 MCG/H
     Route: 003
  5. TETRAZEPAM [Suspect]
     Active Substance: TETRAZEPAM
     Route: 065
  6. OLANZAPINE. [Suspect]
     Active Substance: OLANZAPINE
     Route: 065

REACTIONS (2)
  - Toxicity to various agents [Fatal]
  - Drug interaction [Fatal]
